FAERS Safety Report 6288799-3 (Version None)
Quarter: 2009Q3

REPORT INFORMATION
  Report Type: 
  Country: None (occurrence: None)
  Receive Date: 20090729
  Receipt Date: 20090717
  Transmission Date: 20100115
  Serious: Yes (Other)
  Sender: FDA-Public Use
  Company Number: FR-PFIZER INC-2009193726

PATIENT
  Age: 88 Year

DRUGS (5)
  1. LYRICA [Suspect]
     Indication: PAIN
     Dosage: 300 MG, 1X/DAY
     Dates: start: 20090319, end: 20090319
  2. ARICEPT [Concomitant]
     Dosage: UNK
  3. EFFEXOR [Concomitant]
     Dosage: UNK
  4. DEROXAT [Concomitant]
  5. MEMANTINE HYDROCHLORIDE [Concomitant]

REACTIONS (2)
  - BRADYCARDIA [None]
  - FATIGUE [None]
